FAERS Safety Report 20818392 (Version 1)
Quarter: 2022Q2

REPORT INFORMATION
  Report Type: Spontaneous
  Country: SE (occurrence: SE)
  Receive Date: 20220512
  Receipt Date: 20220512
  Transmission Date: 20220720
  Serious: Yes (Other)
  Sender: FDA-Public Use
  Company Number: None

PATIENT
  Age: 70 Year
  Sex: Male

DRUGS (5)
  1. CLOXACILLIN [Suspect]
     Active Substance: CLOXACILLIN
     Indication: Herpes zoster
     Dosage: UNK
     Dates: start: 202203
  2. CLOXACILLIN [Suspect]
     Active Substance: CLOXACILLIN
     Indication: Staphylococcal infection
     Dosage: UNK
  3. ACYCLOVIR [Suspect]
     Active Substance: ACYCLOVIR
     Indication: Herpes zoster oticus
     Dosage: PER ORAL AND INTRAVENOUS
     Route: 048
     Dates: start: 202203
  4. ACYCLOVIR [Suspect]
     Active Substance: ACYCLOVIR
     Dosage: UNK
  5. ACYCLOVIR [Suspect]
     Active Substance: ACYCLOVIR
     Indication: Herpes zoster oticus
     Dosage: PER ORAL AND INTRAVENOUS
     Route: 042
     Dates: start: 202203

REACTIONS (1)
  - Acute kidney injury [Recovered/Resolved]

NARRATIVE: CASE EVENT DATE: 20220301
